FAERS Safety Report 7364404-X (Version None)
Quarter: 2011Q1

REPORT INFORMATION
  Report Type: 
  Country: None (occurrence: None)
  Receive Date: 20110315
  Receipt Date: 20110315
  Transmission Date: 20110831
  Serious: Yes (Hospitalization)
  Sender: FDA-Public Use
  Company Number: None

PATIENT
  Age: 59 Year
  Sex: Female
  Weight: 125 kg

DRUGS (19)
  1. METOPROLOL [Concomitant]
  2. ACETAMINOPHEN AND HYDROCODONE BITARTRATE [Concomitant]
  3. LACTULOSE [Concomitant]
  4. RIZATRIPTAN BENZOATE [Concomitant]
  5. ESZOPICLONE [Concomitant]
  6. PRAMIPEXOLE DIHYDROCHLORIDE [Concomitant]
  7. BUSPIRONE HCL [Concomitant]
  8. VANCOMYCIN [Suspect]
     Indication: STAPHYLOCOCCAL INFECTION
     Dosage: 1.25 GM Q8H IV BOLUS
     Route: 040
  9. POTASSIUM CHLORIDE [Concomitant]
  10. NEBIVOLOL [Concomitant]
  11. MELATONIN [Concomitant]
  12. BACLOFEN [Concomitant]
  13. WARFARIN [Concomitant]
  14. BISACODYL SUPP [Concomitant]
  15. RISPERIDONE [Concomitant]
  16. NYSTATIN [Concomitant]
  17. BENZTROPINE [Concomitant]
  18. FERROUS SULFATE TAB [Concomitant]
  19. IPRATROPIUM/ALBUEROL NEB [Concomitant]

REACTIONS (4)
  - NEUTROPENIA [None]
  - LETHARGY [None]
  - MENTAL STATUS CHANGES [None]
  - PYREXIA [None]
